FAERS Safety Report 9245931 (Version 1)
Quarter: 2013Q2

REPORT INFORMATION
  Report Type: Spontaneous
  Country: BR (occurrence: BR)
  Receive Date: 20130422
  Receipt Date: 20130422
  Transmission Date: 20140414
  Serious: Yes (Hospitalization)
  Sender: FDA-Public Use
  Company Number: BR-PFIZER INC-2013123247

PATIENT
  Age: 52 Year
  Sex: Female

DRUGS (5)
  1. HYDROCHLOROTHIAZIDE [Suspect]
     Indication: HYPERTENSION
     Dosage: 25 MG, UNK
     Dates: start: 2006
  2. AMLODIPINE BESILATE [Suspect]
     Indication: HYPERTENSION
     Dosage: 5 MG, UNK
     Dates: start: 2011
  3. METHOTREXATE SODIUM [Suspect]
  4. LOSARTAN [Suspect]
     Indication: HYPERTENSION
     Dosage: 50 MG, UNK
     Dates: start: 2010
  5. VIMOVO [Suspect]
     Indication: RHEUMATOID ARTHRITIS
     Dosage: UNSPECIFIED DOSE, DAILY
     Dates: start: 20130325, end: 20130328

REACTIONS (10)
  - Pneumonia [Recovering/Resolving]
  - Headache [Not Recovered/Not Resolved]
  - Retching [Not Recovered/Not Resolved]
  - Pruritus generalised [Not Recovered/Not Resolved]
  - Cough [Unknown]
  - Nasopharyngitis [Unknown]
  - Local swelling [Unknown]
  - Vaginal discharge [Unknown]
  - Agitation [Unknown]
  - Hypersensitivity [None]
